FAERS Safety Report 4771598-9 (Version None)
Quarter: 2005Q3

REPORT INFORMATION
  Report Type: 
  Country: None (occurrence: None)
  Receive Date: 20050913
  Receipt Date: 20050913
  Transmission Date: 20060218
  Serious: Yes (Hospitalization, Other)
  Sender: FDA-Public Use
  Company Number: None

PATIENT
  Sex: Female
  Weight: 123 kg

DRUGS (4)
  1. OXALIPLATIN [Suspect]
     Indication: COLON CANCER
     Dosage: SEE IMAGE
     Route: 042
     Dates: start: 20050830, end: 20050830
  2. LEUCOVORIN [Suspect]
     Dosage: SEE IMAGE
     Route: 042
     Dates: start: 20050830, end: 20050830
  3. FLUOROURACIL [Suspect]
     Dosage: SEE IMAGE
     Route: 040
     Dates: start: 20050830, end: 20050830
  4. FLUOROURACIL [Suspect]
     Dosage: SEE IMAGE
     Route: 042
     Dates: start: 20050830, end: 20050830

REACTIONS (1)
  - PULMONARY EMBOLISM [None]
